FAERS Safety Report 11003509 (Version 1)
Quarter: 2015Q2

REPORT INFORMATION
  Report Type: Spontaneous
  Country: US (occurrence: None)
  Receive Date: 20150408
  Receipt Date: 20150408
  Transmission Date: 20150821
  Serious: No
  Sender: FDA-Public Use
  Company Number: None

PATIENT
  Sex: Male

DRUGS (1)
  1. NEXAVAR [Suspect]
     Active Substance: SORAFENIB
     Indication: HEPATIC CANCER
     Dosage: NEXAVAR 200MG 2 TABLETS BID PO
     Route: 048
     Dates: start: 20150211

REACTIONS (4)
  - Unevaluable event [None]
  - Dysgeusia [None]
  - Weight decreased [None]
  - Gait disturbance [None]
